FAERS Safety Report 5286054-1 (Version None)
Quarter: 2007Q2

REPORT INFORMATION
  Report Type: 
  Country: None (occurrence: None)
  Receive Date: 20070404
  Receipt Date: 20070328
  Transmission Date: 20071010
  Serious: Yes (Death, Other)
  Sender: FDA-Public Use
  Company Number: US-BRISTOL-MYERS SQUIBB COMPANY-13729280

PATIENT

DRUGS (2)
  1. ETOPOSIDE [Suspect]
     Indication: SMALL CELL LUNG CANCER STAGE UNSPECIFIED
  2. CISPLATIN [Suspect]
     Indication: SMALL CELL LUNG CANCER STAGE UNSPECIFIED

REACTIONS (13)
  - ARTHRALGIA [None]
  - DEAFNESS [None]
  - MALIGNANT NEOPLASM PROGRESSION [None]
  - MYALGIA [None]
  - NAUSEA [None]
  - NEPHROPATHY TOXIC [None]
  - NEUTROPENIC SEPSIS [None]
  - PANCYTOPENIA [None]
  - PARALYSIS [None]
  - PNEUMONIA [None]
  - POLYNEUROPATHY [None]
  - RENAL FAILURE [None]
  - VOMITING [None]
